FAERS Safety Report 20297943 (Version 2)
Quarter: 2022Q1

REPORT INFORMATION
  Report Type: Spontaneous
  Country: DE (occurrence: DE)
  Receive Date: 20220105
  Receipt Date: 20220108
  Transmission Date: 20220424
  Serious: Yes (Other)
  Sender: FDA-Public Use
  Company Number: DE-AMGEN-DEUSP2021208315

PATIENT
  Age: 50 Year
  Sex: Female

DRUGS (12)
  1. FILGRASTIM [Suspect]
     Active Substance: FILGRASTIM
     Indication: Product used for unknown indication
     Dosage: UNK
     Route: 065
  2. CARBOPLATIN [Concomitant]
     Active Substance: CARBOPLATIN
     Indication: Ovarian cancer
     Dosage: UNK
  3. CARBOPLATIN [Concomitant]
     Active Substance: CARBOPLATIN
     Indication: Malignant peritoneal neoplasm
     Dosage: UNK
  4. NIRAPARIB [Concomitant]
     Active Substance: NIRAPARIB
     Indication: BRCA2 gene mutation
     Dosage: UNK
     Route: 048
  5. NIRAPARIB [Concomitant]
     Active Substance: NIRAPARIB
     Dosage: 200 MILLIGRAM, QD
     Route: 048
  6. CISPLATIN [Concomitant]
     Active Substance: CISPLATIN
     Dosage: 20 MILLIGRAM/SQ. METER, BODY SURFACE AREA
     Route: 065
     Dates: start: 202001
  7. CISPLATIN [Concomitant]
     Active Substance: CISPLATIN
     Dosage: 20 MILLIGRAM/SQ. METER, BODY SURFACE AREA
     Route: 065
     Dates: start: 202001
  8. PACLITAXEL [Concomitant]
     Active Substance: PACLITAXEL
     Dosage: UNK UNK, Q3WK
     Route: 065
     Dates: start: 202001
  9. PACLITAXEL [Concomitant]
     Active Substance: PACLITAXEL
     Dosage: UNK UNK, Q3WK
     Route: 065
     Dates: start: 202001
  10. SODIUM SELENITE [Concomitant]
     Active Substance: SODIUM SELENITE
     Dosage: 300 MICROGRAM, QD
     Route: 048
  11. CHOLECALCIFEROL [Concomitant]
     Active Substance: CHOLECALCIFEROL
     Dosage: 3000 INTERNATIONAL UNIT, QD
     Route: 048
  12. COLIBIOGEN [ESCHERICHIA COLI METABOLITES] [Concomitant]
     Dosage: 1 TEASPOON, QD
     Route: 048

REACTIONS (2)
  - Ovarian cancer recurrent [Recovering/Resolving]
  - Large intestinal stenosis [Unknown]

NARRATIVE: CASE EVENT DATE: 20191201
